FAERS Safety Report 22285341 (Version 1)
Quarter: 2023Q2

REPORT INFORMATION
  Report Type: Spontaneous
  Country: US (occurrence: None)
  Receive Date: 20230503
  Receipt Date: 20230503
  Transmission Date: 20230722
  Serious: No
  Sender: FDA-Public Use
  Company Number: None

PATIENT
  Age: 11 Year
  Sex: Male

DRUGS (2)
  1. METHYLPHENIDATE HYDROCHLORIDE [Suspect]
     Active Substance: METHYLPHENIDATE HYDROCHLORIDE
     Indication: Attention deficit hyperactivity disorder
     Dosage: FREQUENCY : DAILY;?
     Route: 048
     Dates: start: 20221128, end: 20230224
  2. VITAMINS [Concomitant]
     Active Substance: VITAMINS

REACTIONS (4)
  - Anxiety [None]
  - Nausea [None]
  - Insomnia [None]
  - Decreased appetite [None]

NARRATIVE: CASE EVENT DATE: 20221128
